FAERS Safety Report 20119926 (Version 2)
Quarter: 2022Q1

REPORT INFORMATION
  Report Type: Spontaneous
  Country: US (occurrence: US)
  Receive Date: 20211126
  Receipt Date: 20220118
  Transmission Date: 20220423
  Serious: Yes (Other)
  Sender: FDA-Public Use
  Company Number: US-JNJFOC-20211145315

PATIENT
  Age: 77 Year
  Sex: Male

DRUGS (1)
  1. DARATUMUMAB [Suspect]
     Active Substance: DARATUMUMAB
     Indication: Product use in unapproved indication
     Route: 065

REACTIONS (3)
  - Cytopenia [Unknown]
  - Dyspnoea [Unknown]
  - Toxicity to various agents [Unknown]
